FAERS Safety Report 5084520-5 (Version None)
Quarter: 2006Q3

REPORT INFORMATION
  Report Type: 
  Country: None (occurrence: None)
  Receive Date: 20060818
  Receipt Date: 20060818
  Transmission Date: 20061208
  Serious: Yes (Other)
  Sender: FDA-Public Use
  Company Number: None

PATIENT
  Sex: Male
  Weight: 72.5755 kg

DRUGS (1)
  1. LYRICA [Suspect]
     Indication: CONVULSION
     Dosage: 75 MG TID PO
     Route: 048
     Dates: start: 20060519, end: 20060707

REACTIONS (2)
  - DEAFNESS [None]
  - NERVE INJURY [None]
